FAERS Safety Report 15118899 (Version 1)
Quarter: 2018Q3

REPORT INFORMATION
  Report Type: Spontaneous
  Country: FR (occurrence: FR)
  Receive Date: 20180709
  Receipt Date: 20180709
  Transmission Date: 20181010
  Serious: Yes (Hospitalization)
  Sender: FDA-Public Use
  Company Number: FR-TEVA-2018-FR-922496

PATIENT
  Age: 87 Year
  Sex: Female
  Weight: 34 kg

DRUGS (9)
  1. CERIS 20 MG, COMPRIM? ENROB? [Concomitant]
     Indication: URINARY INCONTINENCE
     Dosage: 40 MILLIGRAM DAILY;
     Route: 048
     Dates: start: 2016
  2. LACTULOSE MYLAN 10 G/15 ML, SOLUTION BUVABLE EN SACHET [Concomitant]
     Indication: CONSTIPATION
     Dosage: 10 GRAM DAILY;
     Route: 048
  3. RAMIPRIL MYLAN 5 MG, COMPRIM? S?CABLE [Suspect]
     Active Substance: RAMIPRIL
     Indication: HYPERTENSION
     Dosage: 5 MILLIGRAM DAILY;
     Route: 048
     Dates: start: 2016, end: 20180404
  4. ICAZ LP 2,5 MG, G?LULE ? LIB?RATION PROLONG?E [Concomitant]
     Indication: HYPERTENSION
     Dosage: 2.5 MILLIGRAM DAILY;
     Route: 048
     Dates: start: 2016
  5. SODIUM ALGINATE SODIUM BICARBONATE MYLAN [Concomitant]
     Indication: GASTROOESOPHAGEAL REFLUX DISEASE
     Dosage: 4 DOSAGE FORMS DAILY;
     Route: 048
     Dates: start: 2016
  6. ESCITALOPRAM [Suspect]
     Active Substance: ESCITALOPRAM OXALATE
     Indication: DEPRESSION
     Dosage: 5 MILLIGRAM DAILY;
     Route: 048
     Dates: start: 20180319, end: 20180404
  7. ACIDE ALENDRONIQUE [Concomitant]
     Active Substance: ALENDRONIC ACID
     Indication: OSTEOPOROSIS
     Dosage: 1 S
     Route: 048
     Dates: start: 2016
  8. CALPEROS D3, COMPRIM? ? SUCER [Concomitant]
     Indication: OSTEOPOROSIS
     Dosage: 500 MILLIGRAM DAILY;
     Route: 048
     Dates: start: 2016
  9. OMEPRAZOLE MYLAN 20 MG, G?LULE GASTRO?R?SISTANTE [Suspect]
     Active Substance: OMEPRAZOLE
     Indication: GASTROOESOPHAGEAL REFLUX DISEASE
     Dosage: 20 MILLIGRAM DAILY;
     Route: 048
     Dates: end: 20180404

REACTIONS (3)
  - Hypoglycaemia [Recovered/Resolved]
  - Hyponatraemia [Recovered/Resolved]
  - Hyperkalaemia [Recovered/Resolved]

NARRATIVE: CASE EVENT DATE: 20180404
